FAERS Safety Report 9172764 (Version 1)
Quarter: 2013Q1

REPORT INFORMATION
  Report Type: Spontaneous
  Country: GB (occurrence: GB)
  Receive Date: 20130319
  Receipt Date: 20130319
  Transmission Date: 20140127
  Serious: Yes (Other)
  Sender: FDA-Public Use
  Company Number: GB-MERCK-1303GBR008181

PATIENT
  Age: 64 Year
  Sex: Male
  Weight: 78 kg

DRUGS (10)
  1. EZETIMIBE [Suspect]
     Dosage: UNK
     Route: 048
     Dates: start: 20130227
  2. BUDESONIDE [Concomitant]
     Dosage: UNK
     Dates: start: 20120903, end: 20121212
  3. CETIRIZINE HYDROCHLORIDE [Concomitant]
     Dosage: UNK
     Dates: start: 20121005, end: 20121204
  4. COLOFAC [Concomitant]
     Dosage: UNK
     Dates: start: 20121129, end: 20121227
  5. LAXIDO [Concomitant]
     Dosage: UNK
     Dates: start: 20130128, end: 20130211
  6. LORATADINE [Concomitant]
     Dosage: UNK
     Dates: start: 20130103, end: 20130202
  7. METOCLOPRAMIDE [Concomitant]
     Dosage: UNK
     Dates: start: 20130110, end: 20130128
  8. OMEPRAZOLE [Concomitant]
     Dosage: UNK
     Route: 048
     Dates: start: 20121212, end: 20130109
  9. TAMSULOSIN HYDROCHLORIDE [Concomitant]
     Dosage: UNK
     Dates: start: 20121018, end: 20121217
  10. VENTOLIN (ALBUTEROL) [Concomitant]
     Dosage: UNK
     Dates: start: 20121217, end: 20130114

REACTIONS (1)
  - Cholestasis [Recovering/Resolving]
